FAERS Safety Report 19749892 (Version 1)
Quarter: 2021Q3

REPORT INFORMATION
  Report Type: Report from Study
  Country: NL (occurrence: NL)
  Receive Date: 20210826
  Receipt Date: 20210826
  Transmission Date: 20211014
  Serious: Yes (Hospitalization, Other)
  Sender: FDA-Public Use
  Company Number: NL-BIOVITRUM-2021NL7773

PATIENT
  Sex: Male
  Weight: 6.9 kg

DRUGS (1)
  1. SYNAGIS [Suspect]
     Active Substance: PALIVIZUMAB
     Indication: HEART DISEASE CONGENITAL
     Route: 030
     Dates: start: 20210818

REACTIONS (2)
  - Respiratory syncytial virus infection [Recovered/Resolved]
  - Skin necrosis [Unknown]
